FAERS Safety Report 10672363 (Version 1)
Quarter: 2014Q4

REPORT INFORMATION
  Report Type: Spontaneous
  Country: US (occurrence: None)
  Receive Date: 20141222
  Receipt Date: 20141222
  Transmission Date: 20150529
  Serious: Yes (Other)
  Sender: FDA-Public Use
  Company Number: None

PATIENT
  Age: 46 Year
  Sex: Male

DRUGS (1)
  1. CEFDINIR. [Suspect]
     Active Substance: CEFDINIR
     Indication: INFLUENZA
     Route: 048

REACTIONS (5)
  - Abdominal discomfort [None]
  - Documented hypersensitivity to administered product [None]
  - Dyspnoea [None]
  - Drug hypersensitivity [None]
  - Chest discomfort [None]

NARRATIVE: CASE EVENT DATE: 20141204
